FAERS Safety Report 18920974 (Version 1)
Quarter: 2021Q1

REPORT INFORMATION
  Report Type: Spontaneous
  Country: CA (occurrence: CA)
  Receive Date: 20210222
  Receipt Date: 20210222
  Transmission Date: 20210420
  Serious: Yes (Other)
  Sender: FDA-Public Use
  Company Number: CA-ORION CORPORATION ORION PHARMA-21_00013241

PATIENT
  Age: 48 Year
  Sex: Female

DRUGS (4)
  1. LORAZEPAM. [Concomitant]
     Active Substance: LORAZEPAM
     Route: 065
  2. METHOTREXATE (TRADE NAME UNKNOWN) [Suspect]
     Active Substance: METHOTREXATE
     Indication: PRODUCT USED FOR UNKNOWN INDICATION
     Dosage: TAPERED
     Route: 048
  3. CELEXA [CELECOXIB] [Concomitant]
     Active Substance: CELECOXIB
     Route: 065
  4. MAXALT [Concomitant]
     Active Substance: RIZATRIPTAN BENZOATE
     Indication: MIGRAINE
     Route: 065

REACTIONS (5)
  - Fungal infection [Unknown]
  - Viral infection [Unknown]
  - Swollen tongue [Unknown]
  - Crohn^s disease [Unknown]
  - Stomatitis [Unknown]

NARRATIVE: CASE EVENT DATE: 20210209
